FAERS Safety Report 8999350 (Version 2)
Quarter: 2013Q1

REPORT INFORMATION
  Report Type: Spontaneous
  Country: US (occurrence: US)
  Receive Date: 20130103
  Receipt Date: 20130123
  Transmission Date: 20140127
  Serious: Yes (Other)
  Sender: FDA-Public Use
  Company Number: PHEH2012US025679

PATIENT
  Sex: Male

DRUGS (4)
  1. GILENYA [Suspect]
     Indication: MULTIPLE SCLEROSIS
     Dosage: 0.5 MG, DAILY
     Route: 048
     Dates: start: 201211, end: 201212
  2. NAPROXEN [Concomitant]
     Dosage: 500 MG, UNK
  3. FINASTERIDE [Concomitant]
     Dosage: 5 MG, UNK
  4. FLOMAX [Concomitant]
     Dosage: 0.4 MG, UNK

REACTIONS (2)
  - Macular oedema [Recovered/Resolved]
  - Visual acuity reduced [Recovered/Resolved]
